FAERS Safety Report 10507720 (Version 1)
Quarter: 2014Q4

REPORT INFORMATION
  Report Type: Other
  Country: US (occurrence: US)
  Receive Date: 20141009
  Receipt Date: 20141009
  Transmission Date: 20150528
  Serious: No
  Sender: FDA-Public Use
  Company Number: US-ENDO PHARMACEUTICALS INC.-METO20130057

PATIENT
  Sex: Male

DRUGS (1)
  1. METOCLOPRAMIDE HYDROCHLORIDE. [Suspect]
     Active Substance: METOCLOPRAMIDE HYDROCHLORIDE
     Indication: PRODUCT USED FOR UNKNOWN INDICATION
     Dosage: UNKNOWN
     Route: 048

REACTIONS (7)
  - Pain in extremity [Unknown]
  - Migraine [Unknown]
  - Depression [Unknown]
  - Memory impairment [Unknown]
  - Anxiety [Unknown]
  - Muscle spasms [Unknown]
  - Bruxism [Unknown]
